FAERS Safety Report 24657400 (Version 2)
Quarter: 2024Q4

REPORT INFORMATION
  Report Type: Spontaneous
  Country: CA (occurrence: CA)
  Receive Date: 20241125
  Receipt Date: 20241204
  Transmission Date: 20250115
  Serious: Yes (Other)
  Sender: PFIZER
  Company Number: CA-PFIZER INC-202400209545

PATIENT
  Age: 68 Year
  Sex: Female

DRUGS (9)
  1. RUXIENCE [Suspect]
     Active Substance: RITUXIMAB-PVVR
     Indication: Rheumatoid arthritis
     Dosage: 1000 MG, DAY 1
     Route: 042
     Dates: start: 20230426
  2. RUXIENCE [Suspect]
     Active Substance: RITUXIMAB-PVVR
     Dosage: 1000 MG, DAY 15
     Route: 042
     Dates: start: 20230509
  3. RUXIENCE [Suspect]
     Active Substance: RITUXIMAB-PVVR
     Dosage: 1000 MG, DAY 1
     Route: 042
     Dates: start: 20231030
  4. RUXIENCE [Suspect]
     Active Substance: RITUXIMAB-PVVR
     Dosage: 1000 MG, DAY 15
     Route: 042
     Dates: start: 20231204
  5. RUXIENCE [Suspect]
     Active Substance: RITUXIMAB-PVVR
     Dosage: 1000 MG, DAY 1
     Route: 042
     Dates: start: 20240605
  6. RUXIENCE [Suspect]
     Active Substance: RITUXIMAB-PVVR
     Dosage: 1000 MG, DAY 15
     Route: 042
     Dates: start: 20240618
  7. CODEINE [Concomitant]
     Active Substance: CODEINE
     Dosage: UNK, AS NEEDED
  8. PREDNISONE [Concomitant]
     Active Substance: PREDNISONE
     Dosage: UNK
  9. TYLENOL [Concomitant]
     Active Substance: ACETAMINOPHEN
     Dosage: UNK

REACTIONS (9)
  - Tendon injury [Recovering/Resolving]
  - Arthropathy [Recovering/Resolving]
  - Rash pruritic [Recovered/Resolved]
  - Pyrexia [Recovered/Resolved]
  - Musculoskeletal stiffness [Recovered/Resolved]
  - Joint stiffness [Recovered/Resolved]
  - Headache [Recovered/Resolved]
  - Cystitis noninfective [Unknown]
  - Incontinence [Unknown]

NARRATIVE: CASE EVENT DATE: 20240701
